FAERS Safety Report 18452356 (Version 1)
Quarter: 2020Q4

REPORT INFORMATION
  Report Type: Report from Study
  Country: None (occurrence: DE)
  Receive Date: 20201102
  Receipt Date: 20201102
  Transmission Date: 20210114
  Serious: Yes (Hospitalization)
  Sender: FDA-Public Use
  Company Number: DE-ABBVIE-20K-062-3628908-00

PATIENT
  Age: 28 Year
  Sex: Female
  Weight: 76 kg

DRUGS (2)
  1. HUMIRA [Suspect]
     Active Substance: ADALIMUMAB
     Indication: COLITIS ULCERATIVE
     Route: 058
     Dates: start: 20150903, end: 202003
  2. SALOFALK [Concomitant]
     Indication: GASTROINTESTINAL INFLAMMATION
     Route: 048
     Dates: start: 2012

REACTIONS (3)
  - Cholesteatoma [Recovered/Resolved]
  - Drug ineffective [Not Recovered/Not Resolved]
  - Colitis ulcerative [Recovering/Resolving]

NARRATIVE: CASE EVENT DATE: 201804
